FAERS Safety Report 17315170 (Version 1)
Quarter: 2020Q1

REPORT INFORMATION
  Report Type: Spontaneous
  Country: US (occurrence: US)
  Receive Date: 20200124
  Receipt Date: 20200124
  Transmission Date: 20200409
  Serious: Yes (Hospitalization, Other)
  Sender: FDA-Public Use
  Company Number: US-CURIUM-199800120

PATIENT
  Age: 37 Year
  Sex: Male

DRUGS (1)
  1. TECHNESCAN PYP [Suspect]
     Active Substance: TECHNETIUM TC-99M PYROPHOSPHATE
     Indication: GASTROINTESTINAL HAEMORRHAGE
     Dates: start: 19980515, end: 19980515

REACTIONS (5)
  - Seizure [Unknown]
  - Unresponsive to stimuli [Unknown]
  - Respiratory distress [Unknown]
  - Flushing [Unknown]
  - Tremor [Unknown]

NARRATIVE: CASE EVENT DATE: 19980515
